FAERS Safety Report 6085746-4 (Version None)
Quarter: 2009Q1

REPORT INFORMATION
  Report Type: 
  Country: None (occurrence: None)
  Receive Date: 20090220
  Receipt Date: 20090212
  Transmission Date: 20090719
  Serious: Yes (Other)
  Sender: FDA-Public Use
  Company Number: AU-ALLERGAN-0901602US

PATIENT
  Sex: Male

DRUGS (7)
  1. BOTULINUM TOXIN TYPE A [Suspect]
     Indication: OESOPHAGEAL DISORDER
     Dosage: UNK, SINGLE
     Dates: start: 20021115, end: 20021115
  2. ASSASANTIN [Concomitant]
  3. AVAPRO [Concomitant]
  4. DIABEX [Concomitant]
  5. LOSEC [Concomitant]
  6. MINIDIAB [Concomitant]
  7. NORVASC [Concomitant]

REACTIONS (3)
  - ANGIOEDEMA [None]
  - DYSPHAGIA [None]
  - URTICARIA [None]
